FAERS Safety Report 14929277 (Version 1)
Quarter: 2018Q2

REPORT INFORMATION
  Report Type: Report from Study
  Country: US (occurrence: US)
  Receive Date: 20180523
  Receipt Date: 20180523
  Transmission Date: 20180711
  Serious: Yes (Hospitalization, Other)
  Sender: FDA-Public Use
  Company Number: US-EXELIXIS-XL18418014056

PATIENT
  Age: 53 Year
  Sex: Male
  Weight: 79.8 kg

DRUGS (2)
  1. NIVOLUMAB [Suspect]
     Active Substance: NIVOLUMAB
     Indication: TRANSITIONAL CELL CARCINOMA
     Dosage: 3 MG/KG OVER 60 MINUTES ON DAY 1 AND 15
     Route: 042
     Dates: start: 20171219
  2. XL184 [Suspect]
     Active Substance: CABOZANTINIB
     Indication: TRANSITIONAL CELL CARCINOMA
     Dosage: 40 MG, QD
     Route: 048
     Dates: start: 20171219

REACTIONS (7)
  - Pyrexia [Recovered/Resolved]
  - Vomiting [Unknown]
  - Back pain [Unknown]
  - Aspiration [Unknown]
  - Urinary tract infection [Unknown]
  - Sepsis [Unknown]
  - Pancytopenia [Unknown]

NARRATIVE: CASE EVENT DATE: 20180425
